FAERS Safety Report 6129342-9 (Version None)
Quarter: 2009Q1

REPORT INFORMATION
  Report Type: 
  Country: None (occurrence: None)
  Receive Date: 20090320
  Receipt Date: 20090303
  Transmission Date: 20090719
  Serious: Yes (Other)
  Sender: FDA-Public Use
  Company Number: 6049479

PATIENT
  Age: 40 Year
  Sex: Female

DRUGS (2)
  1. EUTIROX (50 MICROGRAM)(LEVOTHYROXINE SODIUM) [Suspect]
     Indication: DRUG USE FOR UNKNOWN INDICATION
     Dosage: 50 MCG (50 MCG,1 IN 1 D) ORAL; 12.5 MCG (12.5 MCG, 1IN 1 D)  ORAL
     Route: 048
     Dates: start: 20090224, end: 20090225
  2. EUTIROX (50 MICROGRAM)(LEVOTHYROXINE SODIUM) [Suspect]
     Indication: DRUG USE FOR UNKNOWN INDICATION
     Dosage: 50 MCG (50 MCG,1 IN 1 D) ORAL; 12.5 MCG (12.5 MCG, 1IN 1 D)  ORAL
     Route: 048
     Dates: start: 20090227, end: 20090228

REACTIONS (6)
  - FACIAL PALSY [None]
  - LIP SWELLING [None]
  - MONOPLEGIA [None]
  - PARAESTHESIA [None]
  - PARALYSIS [None]
  - TRISMUS [None]
